FAERS Safety Report 15165154 (Version 2)
Quarter: 2018Q3

REPORT INFORMATION
  Report Type: Report from Study
  Country: GT (occurrence: GT)
  Receive Date: 20180719
  Receipt Date: 20180803
  Transmission Date: 20181010
  Serious: Yes (Other)
  Sender: FDA-Public Use
  Company Number: PHHY2018GT046991

PATIENT
  Sex: Female
  Weight: 72.56 kg

DRUGS (3)
  1. CETAMIN [Concomitant]
     Indication: PAIN
     Dosage: 1 DF, Q12H
     Route: 048
  2. EXFORGE HCT [Suspect]
     Active Substance: AMLODIPINE BESYLATE\HYDROCHLOROTHIAZIDE\VALSARTAN
     Indication: HYPERTENSION
     Dosage: 1 DF(AMLODIPINE 5MG, HYDROCHLOROTHIAZIDE 25MG,VALSARTAN 160MG), QD
     Route: 065
  3. CIPROFIBRATE [Concomitant]
     Active Substance: CIPROFIBRATE
     Indication: PRODUCT USED FOR UNKNOWN INDICATION
     Dosage: 1 DF, QD
     Route: 048

REACTIONS (2)
  - Asthenia [Unknown]
  - Pancreatic enlargement [Recovering/Resolving]
